FAERS Safety Report 12636041 (Version 1)
Quarter: 2016Q3

REPORT INFORMATION
  Report Type: Spontaneous
  Country: US (occurrence: US)
  Receive Date: 20160809
  Receipt Date: 20160809
  Transmission Date: 20161109
  Serious: No
  Sender: FDA-Public Use
  Company Number: US-ASTRAZENECA-2016SE82633

PATIENT
  Sex: Female

DRUGS (6)
  1. SYMBICORT [Suspect]
     Active Substance: BUDESONIDE\FORMOTEROL FUMARATE DIHYDRATE
     Indication: ASTHMA
     Dosage: 160/4.5MCG, 1 PUFF TWICE DAILY
     Route: 055
     Dates: start: 201601
  2. MEDICATION [Concomitant]
     Active Substance: UNSPECIFIED INGREDIENT
     Indication: HYPOTENSION
  3. MEDICATION [Concomitant]
     Active Substance: UNSPECIFIED INGREDIENT
     Indication: INHALATION THERAPY
  4. MEDICATION [Concomitant]
     Active Substance: UNSPECIFIED INGREDIENT
     Indication: BLOOD CHOLESTEROL ABNORMAL
  5. TUDORZA PRESSAIR [Suspect]
     Active Substance: ACLIDINIUM BROMIDE
     Indication: ASTHMA
     Dosage: 400 MCG, UNKNOWN
     Route: 055
  6. XOPENEX HFA [Concomitant]
     Active Substance: LEVALBUTEROL TARTRATE
     Dosage: AS REQUIRED

REACTIONS (8)
  - Fatigue [Unknown]
  - Off label use [Unknown]
  - Asthma [Unknown]
  - Pneumonia [Unknown]
  - Pain [Unknown]
  - Discomfort [Unknown]
  - Fluid retention [Unknown]
  - Dysphonia [Unknown]

NARRATIVE: CASE EVENT DATE: 201605
